FAERS Safety Report 7232341-7 (Version None)
Quarter: 2011Q1

REPORT INFORMATION
  Report Type: 
  Country: None (occurrence: None)
  Receive Date: 20110106
  Receipt Date: 20101227
  Transmission Date: 20110831
  Serious: Yes (Life-Threatening, Hospitalization, Congenital Anomaly)
  Sender: FDA-Public Use
  Company Number: DSJ-2010-18536

PATIENT
  Age: 1 Day
  Sex: Female
  Weight: 1.358 kg

DRUGS (1)
  1. OLMETEC (OLMESARTAN MEDOXOMIL) (TABLET) (OLMESARTAN MEDOXOMIL) [Suspect]
     Indication: GESTATIONAL HYPERTENSION
     Dosage: 20 MG, TRANSPLACENTAL
     Route: 064
     Dates: start: 20100921, end: 20101012

REACTIONS (15)
  - FOETAL GROWTH RESTRICTION [None]
  - PANCREATORENAL SYNDROME [None]
  - MATERNAL DRUGS AFFECTING FOETUS [None]
  - PREMATURE BABY [None]
  - OLIGOHYDRAMNIOS [None]
  - PERITONEAL DIALYSIS [None]
  - NEONATAL ANURIA [None]
  - RESPIRATORY DISORDER NEONATAL [None]
  - CONTRAINDICATION TO MEDICAL TREATMENT [None]
  - NEONATAL HYPOTENSION [None]
  - RENAL DYSPLASIA [None]
  - CAESAREAN SECTION [None]
  - HEART SOUNDS ABNORMAL [None]
  - RETINOPATHY OF PREMATURITY [None]
  - DRUG CLEARANCE DECREASED [None]
